FAERS Safety Report 8256060-3 (Version None)
Quarter: 2012Q2

REPORT INFORMATION
  Report Type: 
  Country: None (occurrence: None)
  Receive Date: 20120403
  Receipt Date: 20120321
  Transmission Date: 20120825
  Serious: Yes (Other)
  Sender: FDA-Public Use
  Company Number: AU-ROCHE-1053446

PATIENT
  Age: 26 Year
  Sex: Male

DRUGS (2)
  1. INTERFERON ALFA-2A [Suspect]
     Indication: HEPATITIS C
     Route: 065
     Dates: start: 20100401
  2. ARIPIPRAZOLE [Concomitant]
     Indication: PSYCHOTIC DISORDER

REACTIONS (1)
  - MANIA [None]
